FAERS Safety Report 5951042-6 (Version None)
Quarter: 2008Q4

REPORT INFORMATION
  Report Type: 
  Country: None (occurrence: None)
  Receive Date: 20081110
  Receipt Date: 20081023
  Transmission Date: 20090506
  Serious: Yes (Other)
  Sender: FDA-Public Use
  Company Number: 2008S1019559

PATIENT
  Age: 80 Year
  Sex: Male

DRUGS (5)
  1. VALPRO (VALPROATE SODIUM) [Suspect]
     Indication: CONVULSION
     Dosage: SEE IMAGE.
     Route: 048
     Dates: start: 20080916, end: 20080922
  2. VALPRO (VALPROATE SODIUM) [Suspect]
     Indication: CONVULSION
     Dosage: SEE IMAGE.
     Route: 048
     Dates: start: 20080923, end: 20081006
  3. VALPRO (VALPROATE SODIUM) [Suspect]
     Indication: CONVULSION
     Dosage: SEE IMAGE.
     Route: 048
     Dates: start: 20081007
  4. ASASANTIN /00580301/ (ASASANTIN /00580301/ ) [Concomitant]
  5. ANTI-ASTHMATICS (ANTI-ASTHMATICS) [Concomitant]

REACTIONS (5)
  - CONFUSIONAL STATE [None]
  - DIZZINESS [None]
  - FATIGUE [None]
  - GAIT DISTURBANCE [None]
  - VISION BLURRED [None]
